FAERS Safety Report 9408929 (Version 2)
Quarter: 2013Q3

REPORT INFORMATION
  Report Type: Other
  Country: GB (occurrence: GB)
  Receive Date: 20130719
  Receipt Date: 20130809
  Transmission Date: 20140515
  Serious: Yes (Other)
  Sender: FDA-Public Use
  Company Number: GB-BRISTOL-MYERS SQUIBB COMPANY-19119791

PATIENT
  Age: 62 Year
  Sex: Female

DRUGS (5)
  1. METFORMIN HCL [Suspect]
  2. CLOPIDOGREL BISULFATE [Suspect]
  3. SIMVASTATIN [Concomitant]
  4. RAMIPRIL [Concomitant]
  5. INSULIN [Concomitant]

REACTIONS (2)
  - Sweat gland tumour [Unknown]
  - Eyelid bleeding [Unknown]
